FAERS Safety Report 8215038-6 (Version None)
Quarter: 2012Q1

REPORT INFORMATION
  Report Type: 
  Country: None (occurrence: None)
  Receive Date: 20120316
  Receipt Date: 20120305
  Transmission Date: 20120608
  Serious: No
  Sender: FDA-Public Use
  Company Number: US-B.I. PHARMACEUTICALS,INC./RIDGEFIELD-2012-BP-04189BP

PATIENT
  Sex: Male

DRUGS (1)
  1. COMBIVENT [Suspect]
     Indication: BRONCHITIS CHRONIC
     Route: 055
     Dates: start: 20050101, end: 20120302

REACTIONS (5)
  - INSOMNIA [None]
  - COUGH [None]
  - ASTHMA [None]
  - WHEEZING [None]
  - PNEUMONIA [None]
